FAERS Safety Report 9316284 (Version 1)
Quarter: 2013Q1

REPORT INFORMATION
  Report Type: Spontaneous
  Country: US (occurrence: None)
  Receive Date: 20130109
  Receipt Date: 20130109
  Transmission Date: 20140127
  Serious: Yes (Hospitalization)
  Sender: FDA-Public Use
  Company Number: 2012KR000722

PATIENT
  Age: 43 Year
  Sex: Male
  Weight: 80 kg

DRUGS (3)
  1. PONATINIB [Suspect]
     Indication: CHRONIC MYELOID LEUKAEMIA
     Route: 048
     Dates: start: 20110128, end: 20120718
  2. VALSARTAN [Concomitant]
     Dates: start: 20110715
  3. METFORMIN [Concomitant]
     Dates: start: 20111202

REACTIONS (14)
  - Cerebral infarction [None]
  - Carotid artery stenosis [None]
  - Cerebral artery stenosis [None]
  - Blood glucose increased [None]
  - Aspartate aminotransferase increased [None]
  - Alanine aminotransferase increased [None]
  - Blood creatine phosphokinase increased [None]
  - Red blood cell count increased [None]
  - Amylase decreased [None]
  - Fibrin D dimer decreased [None]
  - Glycosylated haemoglobin increased [None]
  - High density lipoprotein decreased [None]
  - Low density lipoprotein increased [None]
  - Cerebral hypoperfusion [None]
